FAERS Safety Report 6083173-7 (Version None)
Quarter: 2009Q1

REPORT INFORMATION
  Report Type: 
  Country: None (occurrence: None)
  Receive Date: 20090219
  Receipt Date: 20090210
  Transmission Date: 20090719
  Serious: Yes (Other)
  Sender: FDA-Public Use
  Company Number: PHEH2009US01629

PATIENT

DRUGS (2)
  1. ZOMETA [Suspect]
     Indication: BREAST CANCER
  2. ZOMETA [Suspect]
     Indication: OSTEOPOROSIS

REACTIONS (1)
  - BONE DENSITY DECREASED [None]
